FAERS Safety Report 13557669 (Version 4)
Quarter: 2018Q1

REPORT INFORMATION
  Report Type: Spontaneous
  Country: US (occurrence: US)
  Receive Date: 20170518
  Receipt Date: 20180105
  Transmission Date: 20180508
  Serious: Yes (Hospitalization, Other)
  Sender: FDA-Public Use
  Company Number: US-ROCHE-1935545

PATIENT
  Age: 82 Year
  Sex: Female
  Weight: 49.49 kg

DRUGS (20)
  1. ESBRIET [Suspect]
     Active Substance: PIRFENIDONE
     Indication: IDIOPATHIC PULMONARY FIBROSIS
     Dosage: TAKE 1 CAPS BY MOUTH 3 TIMES DAILY FOR 1 WEEK,
     Route: 048
     Dates: start: 20170117, end: 20170405
  2. FUROSEMIDE. [Concomitant]
     Active Substance: FUROSEMIDE
  3. OFEV [Concomitant]
     Active Substance: NINTEDANIB
  4. OMEPRAZOLE. [Concomitant]
     Active Substance: OMEPRAZOLE
  5. AMLODIPINE BESYLATE. [Concomitant]
     Active Substance: AMLODIPINE BESYLATE
  6. FLONASE [Concomitant]
     Active Substance: FLUTICASONE PROPIONATE
  7. POTASSIUM CHLORIDE. [Concomitant]
     Active Substance: POTASSIUM CHLORIDE
  8. RESTASIS [Concomitant]
     Active Substance: CYCLOSPORINE
  9. ESBRIET [Suspect]
     Active Substance: PIRFENIDONE
     Dosage: TAKE 2 CAPS BY MOUTH 3 TIMES DAILY FOR 1 WEEK,
     Route: 048
  10. OFLOXACIN. [Concomitant]
     Active Substance: OFLOXACIN
  11. SYMBICORT [Concomitant]
     Active Substance: BUDESONIDE\FORMOTEROL FUMARATE DIHYDRATE
  12. CIPRODEX (UNITED STATES) [Concomitant]
  13. MONTELUKAST SODIUM. [Concomitant]
     Active Substance: MONTELUKAST SODIUM
  14. COLESTIPOL HCL [Concomitant]
     Active Substance: COLESTIPOL HYDROCHLORIDE
  15. ESBRIET [Suspect]
     Active Substance: PIRFENIDONE
     Dosage: TAKE 3 CAPS BY MOUTH 3 TIMES DAILY
     Route: 048
  16. ESBRIET [Suspect]
     Active Substance: PIRFENIDONE
     Dosage: TAKE 1 CAPS BY MOUTH 3 TIMES DAILY FOR 1 WEEK,
     Route: 048
  17. MEDROL [Concomitant]
     Active Substance: METHYLPREDNISOLONE
  18. METOPROLOL TARTRATE. [Concomitant]
     Active Substance: METOPROLOL TARTRATE
  19. NYSTATIN/TRIAMCINOLONE [Concomitant]
     Active Substance: NYSTATIN\TRIAMCINOLONE
  20. TIZANIDINE HCL [Concomitant]
     Active Substance: TIZANIDINE HYDROCHLORIDE

REACTIONS (6)
  - Tongue blistering [Recovered/Resolved]
  - Lip blister [Unknown]
  - Hypersensitivity [Unknown]
  - Swollen tongue [Recovered/Resolved]
  - Dehydration [Recovered/Resolved]
  - Mouth ulceration [Unknown]

NARRATIVE: CASE EVENT DATE: 201703
